FAERS Safety Report 6294643-0 (Version None)
Quarter: 2009Q3

REPORT INFORMATION
  Report Type: 
  Country: None (occurrence: None)
  Receive Date: 20090803
  Receipt Date: 20090609
  Transmission Date: 20100115
  Serious: Yes (Hospitalization)
  Sender: FDA-Public Use
  Company Number: US-PURDUE-USA-2009-0038813

PATIENT
  Weight: 114.29 kg

DRUGS (1)
  1. OXYCONTIN [Suspect]
     Indication: ANALGESIA
     Dosage: UNK
     Dates: start: 19990203, end: 20010810

REACTIONS (2)
  - FLASHBACK [None]
  - PHYSICAL ASSAULT [None]
